FAERS Safety Report 24238549 (Version 1)
Quarter: 2024Q3

REPORT INFORMATION
  Report Type: Spontaneous
  Country: US (occurrence: None)
  Receive Date: 20240820
  Receipt Date: 20240820
  Transmission Date: 20241017
  Serious: Yes (Hospitalization, Other)
  Sender: Public
  Company Number: None

PATIENT
  Age: 78 Year
  Sex: Male
  Weight: 99.79 kg

DRUGS (1)
  1. AMIODARONE HYDROCHLORIDE [Suspect]
     Active Substance: AMIODARONE HYDROCHLORIDE
     Indication: Atrial fibrillation
     Dosage: FREQUENCY : TWICE A DAY;?
     Route: 048
     Dates: start: 20231112, end: 20240501

REACTIONS (8)
  - Product communication issue [None]
  - Fall [None]
  - Cerebrovascular accident [None]
  - Balance disorder [None]
  - Dysarthria [None]
  - Mental impairment [None]
  - Overdose [None]
  - Weight decreased [None]

NARRATIVE: CASE EVENT DATE: 20231112
